FAERS Safety Report 4642660-6 (Version None)
Quarter: 2005Q2

REPORT INFORMATION
  Report Type: 
  Country: None (occurrence: None)
  Receive Date: 20050420
  Receipt Date: 20050408
  Transmission Date: 20051028
  Serious: Yes (Death, Hospitalization, Disabling, Other)
  Sender: FDA-Public Use
  Company Number: 2004-00846

PATIENT
  Age: 54 Year
  Sex: Female
  Weight: 80 kg

DRUGS (15)
  1. VELCADE [Suspect]
     Indication: MULTIPLE MYELOMA
     Dosage: 1.30 MG/M2, 2/WEEK, INTRAVENOUS
     Route: 042
     Dates: start: 20041105, end: 20041112
  2. ACYCLOVIR [Concomitant]
  3. ITRACONAZOLE (ITRAZONAZOLE) [Concomitant]
  4. OXYCODONE (OXYCODONE) [Concomitant]
  5. OMEPRAZOLE [Concomitant]
  6. ONDANSETRON HCL [Concomitant]
  7. NEUPOGEN [Concomitant]
  8. MEROPENEM (MEROPENEM) [Concomitant]
  9. CLARITHROMYCIN [Concomitant]
  10. ASPIRIN [Concomitant]
  11. PREDNISONE [Concomitant]
  12. AZATHIOPRINE [Concomitant]
  13. ENOXAPARIN SODIUM [Concomitant]
  14. FENTANYL [Concomitant]
  15. NYSTATIN [Concomitant]

REACTIONS (11)
  - APHASIA [None]
  - BRONCHOPNEUMONIA [None]
  - DYSARTHRIA [None]
  - DYSPHAGIA [None]
  - DYSPHASIA [None]
  - GUILLAIN-BARRE SYNDROME [None]
  - HYPOAESTHESIA [None]
  - HYPOAESTHESIA ORAL [None]
  - PERIPHERAL SENSORY NEUROPATHY [None]
  - SOMNOLENCE [None]
  - SPINAL COMPRESSION FRACTURE [None]
